FAERS Safety Report 23069157 (Version 1)
Quarter: 2023Q4

REPORT INFORMATION
  Report Type: Spontaneous
  Country: CN (occurrence: CN)
  Receive Date: 20231016
  Receipt Date: 20231016
  Transmission Date: 20240110
  Serious: Yes (Hospitalization, Other)
  Sender: FDA-Public Use
  Company Number: CN-ORGANON-O2310CHN001248

PATIENT
  Age: 30 Year
  Sex: Female
  Weight: 51 kg

DRUGS (9)
  1. ORGALUTRAN [Suspect]
     Active Substance: GANIRELIX ACETATE
     Indication: Ovulation induction
     Dosage: 0.25 MG, QD
     Route: 058
     Dates: start: 20230906, end: 20230913
  2. UROFOLLITROPIN [Suspect]
     Active Substance: UROFOLLITROPIN
     Indication: Ovulation induction
     Dosage: 225IU,QD
     Dates: start: 20230901, end: 20230912
  3. CHORIONIC GONADOTROPHIN [Suspect]
     Active Substance: CHORIOGONADOTROPIN ALFA
     Indication: Ovulation induction
     Dosage: 6000IU, QD
     Route: 030
     Dates: start: 20230913, end: 20230913
  4. TRIPTORELIN ACETATE [Suspect]
     Active Substance: TRIPTORELIN ACETATE
     Indication: Ovulation induction
     Dosage: 0.2MG,QD
     Route: 058
     Dates: start: 20230913, end: 20230913
  5. MENOTROPINS [Suspect]
     Active Substance: MENOTROPINS
     Indication: Ovulation induction
     Dosage: 75IU,QD
     Route: 030
     Dates: start: 20230906, end: 20230912
  6. MENOTROPINS [Suspect]
     Active Substance: MENOTROPINS
     Dosage: 150IU,QD
     Dates: start: 20230913, end: 20230913
  7. SODIUM CHLORIDE [Concomitant]
     Active Substance: SODIUM CHLORIDE
     Indication: Vehicle solution use
     Dosage: 2ML,QD
     Route: 030
     Dates: start: 20230901, end: 20230905
  8. SODIUM CHLORIDE [Concomitant]
     Active Substance: SODIUM CHLORIDE
     Dosage: 2ML,QD
     Route: 030
     Dates: start: 20230906, end: 20230912
  9. SODIUM CHLORIDE [Concomitant]
     Active Substance: SODIUM CHLORIDE
     Dosage: 2ML,QD
     Route: 030
     Dates: start: 20230913, end: 20230913

REACTIONS (6)
  - Ovarian hyperstimulation syndrome [Recovering/Resolving]
  - Abdominal distension [Recovering/Resolving]
  - Nausea [Recovering/Resolving]
  - Gastrooesophageal reflux disease [Recovering/Resolving]
  - Vomiting [Recovering/Resolving]
  - Decreased appetite [Recovering/Resolving]

NARRATIVE: CASE EVENT DATE: 20230916
